FAERS Safety Report 15699307 (Version 1)
Quarter: 2018Q4

REPORT INFORMATION
  Report Type: Other
  Country: ES (occurrence: ES)
  Receive Date: 20181207
  Receipt Date: 20181207
  Transmission Date: 20190205
  Serious: Yes (Other)
  Sender: FDA-Public Use
  Company Number: ES-APOTEX-2018AP026034

PATIENT
  Age: 55 Year
  Sex: Female

DRUGS (2)
  1. MEIACT [Suspect]
     Active Substance: CEFDITOREN PIVOXIL
     Indication: PNEUMONIA
     Dosage: 200 MG, EVERY 8 HOURS (200 MG THRICE A DAY FOR 6 DAYS AND TWICE A DAY FOR ONE DAY)
     Route: 048
     Dates: start: 20171122, end: 20171128
  2. AZITHROMYCIN ANHYDROUS. [Suspect]
     Active Substance: AZITHROMYCIN ANHYDROUS
     Indication: PNEUMONIA
     Dosage: UNK
     Route: 048
     Dates: start: 20171122, end: 20171127

REACTIONS (1)
  - Mixed liver injury [Recovered/Resolved]

NARRATIVE: CASE EVENT DATE: 20171127
